FAERS Safety Report 5607334-3 (Version None)
Quarter: 2008Q1

REPORT INFORMATION
  Report Type: 
  Country: None (occurrence: None)
  Receive Date: 20080130
  Receipt Date: 20080122
  Transmission Date: 20080703
  Serious: Yes (Hospitalization, Congenital Anomaly)
  Sender: FDA-Public Use
  Company Number: FR-JNJFOC-20080105191

PATIENT
  Age: 1 Day
  Sex: Male
  Weight: 2.22 kg

DRUGS (5)
  1. EPITOMAX [Suspect]
     Indication: DRUG EXPOSURE DURING PREGNANCY
  2. TRILEPTAL [Suspect]
     Indication: DRUG EXPOSURE DURING PREGNANCY
  3. URBANYL [Suspect]
     Indication: DRUG EXPOSURE DURING PREGNANCY
  4. VALIUM [Suspect]
     Indication: DRUG EXPOSURE DURING PREGNANCY
  5. CLONAZEPAM [Suspect]
     Indication: DRUG EXPOSURE DURING PREGNANCY

REACTIONS (5)
  - APNOEA [None]
  - BRADYCARDIA [None]
  - DECREASED ACTIVITY [None]
  - HYPOTONIA [None]
  - NEONATAL RESPIRATORY DISTRESS SYNDROME [None]
